FAERS Safety Report 10477793 (Version 2)
Quarter: 2014Q3

REPORT INFORMATION
  Report Type: Report from Study
  Country: TW (occurrence: TW)
  Receive Date: 20140926
  Receipt Date: 20140926
  Transmission Date: 20150326
  Serious: Yes (Hospitalization)
  Sender: FDA-Public Use
  Company Number: TW-OTSUKA-JP-2013-16281

PATIENT

DRUGS (104)
  1. APRESOLINE HYDROCHLORIDE [Concomitant]
     Active Substance: HYDRALAZINE HYDROCHLORIDE
     Indication: HYPERTENSION
     Dosage: 10 MG MILLIGRAM(S), TID
     Route: 048
     Dates: start: 20131025, end: 20140104
  2. CRESTOR [Concomitant]
     Active Substance: ROSUVASTATIN CALCIUM
     Dosage: 5 MG MILLIGRAM(S), QD
     Route: 048
     Dates: start: 20140101, end: 20140106
  3. CRESTOR [Concomitant]
     Active Substance: ROSUVASTATIN CALCIUM
     Dosage: 6 MG MILLIGRAM(S), QD
     Route: 048
     Dates: start: 20140115
  4. GLUCOBAY [Concomitant]
     Active Substance: ACARBOSE
     Indication: TYPE 2 DIABETES MELLITUS
     Dosage: 50 MG MILLIGRAM(S), TID
     Route: 048
     Dates: start: 20131225, end: 20140103
  5. SENNAPUR [Concomitant]
     Dosage: 12.5 MG MILLIGRAM(S), HS
     Route: 048
     Dates: start: 20131224, end: 20131224
  6. COUGH MIXTURE A [Concomitant]
     Indication: COUGH
     Dosage: 15 ML MILLILITRE(S), SINGLE
     Route: 048
     Dates: start: 20131225, end: 20131225
  7. NOVONORM [Concomitant]
     Active Substance: REPAGLINIDE
     Dosage: 1 MG MILLIGRAM(S), BID
     Route: 048
     Dates: start: 20131225, end: 20131225
  8. JANUVIA [Concomitant]
     Active Substance: SITAGLIPTIN PHOSPHATE
     Indication: DIABETES MELLITUS
     Dosage: 50 MG MILLIGRAM(S), QD
     Route: 048
     Dates: start: 20131115, end: 20131218
  9. BOKEY [Concomitant]
     Indication: ANALGESIC THERAPY
     Dosage: 100 MG MILLIGRAM(S), QOD
     Route: 048
     Dates: start: 20131121, end: 20131218
  10. CARVEDILOL. [Concomitant]
     Active Substance: CARVEDILOL
     Dosage: 3.125 MG MILLIGRAM(S), SINGLE
     Route: 048
     Dates: start: 20131226, end: 20131226
  11. POTASSIUM GLUCONATE [Concomitant]
     Active Substance: POTASSIUM GLUCONATE
     Indication: HYPOKALAEMIA
     Dosage: 2380 MG MILLIGRAM(S), TID
     Route: 048
     Dates: start: 20131214, end: 20131215
  12. SODIUM CHLORIDE. [Concomitant]
     Active Substance: SODIUM CHLORIDE
     Dosage: 500 ML MILLILITRE(S), QD
     Route: 042
     Dates: start: 20131219, end: 20131220
  13. SODIUM CHLORIDE. [Concomitant]
     Active Substance: SODIUM CHLORIDE
     Dosage: 50 ML MILLILITRE(S), SINGLE
     Route: 042
     Dates: start: 20140104, end: 20140104
  14. CALCIUM GLUCONATE. [Concomitant]
     Active Substance: CALCIUM GLUCONATE
     Indication: HYPOCALCAEMIA
     Dosage: 5 ML MILLILITRE(S), SINGLE
     Route: 042
     Dates: start: 20140103, end: 20140103
  15. OPC-41061 [Suspect]
     Active Substance: TOLVAPTAN
     Indication: OEDEMA DUE TO CARDIAC DISEASE
     Dosage: UNK
     Route: 048
     Dates: start: 20131111, end: 20131114
  16. ACTRAPID [Concomitant]
     Active Substance: INSULIN HUMAN
     Indication: DIABETES MELLITUS
     Dosage: 10 IU, SINGLE
     Route: 042
     Dates: start: 20140103, end: 20140103
  17. SORBITRATE [Concomitant]
     Active Substance: ISOSORBIDE DINITRATE
     Indication: ANGINA PECTORIS
     Dosage: 10 MG MILLIGRAM(S), TID
     Route: 048
     Dates: start: 20131114, end: 20131219
  18. ALDACTONE [Concomitant]
     Active Substance: SPIRONOLACTONE
     Dosage: 50 MG MILLIGRAM(S), BID
     Route: 048
     Dates: start: 20131227, end: 20140103
  19. NOVONORM [Concomitant]
     Active Substance: REPAGLINIDE
     Dosage: 1 MG MILLIGRAM(S), SINGLE
     Route: 048
     Dates: start: 20140103, end: 20140103
  20. NOVONORM [Concomitant]
     Active Substance: REPAGLINIDE
     Dosage: 1 MG MILLIGRAM(S), QD
     Route: 048
     Dates: start: 20140114, end: 20140127
  21. SANCOBA [Concomitant]
     Active Substance: CYANOCOBALAMIN
     Dosage: 1 GTT DROP(S), QID
     Route: 047
     Dates: start: 20140121, end: 20140127
  22. GITOSE [Concomitant]
     Indication: NUTRITIONAL SUPPLEMENTATION
     Dosage: 200 ML MILLILITRE(S), SINGLE
     Route: 042
     Dates: start: 20131209, end: 20131212
  23. SODIUM CHLORIDE. [Concomitant]
     Active Substance: SODIUM CHLORIDE
     Dosage: 250 ML MILLILITRE(S), QD
     Route: 042
     Dates: start: 20131220, end: 20131224
  24. ALCOS-ANAL [Concomitant]
     Indication: HAEMORRHOIDS
     Dosage: 1 G GRAM(S), SINGLE
     Route: 054
     Dates: start: 20140107, end: 20140107
  25. APRESOLINE HYDROCHLORIDE [Concomitant]
     Active Substance: HYDRALAZINE HYDROCHLORIDE
     Dosage: 25 MG MILLIGRAM(S), QID
     Route: 048
     Dates: start: 20131114, end: 20131218
  26. URINORM [Concomitant]
     Active Substance: BENZBROMARONE
     Indication: GOUT
     Dosage: 50 MG MILLIGRAM(S), BID
     Route: 048
     Dates: start: 20131025
  27. ACTEIN [Concomitant]
     Dosage: 200 MG MILLIGRAM(S), QID
     Route: 048
     Dates: start: 20140108, end: 20140114
  28. SENNAPUR [Concomitant]
     Dosage: 12.5 MG MILLIGRAM(S), HS
     Route: 048
     Dates: start: 20131221, end: 20131221
  29. COUGH MIXTURE A [Concomitant]
     Dosage: 10 ML MILLILITRE(S), QID
     Route: 048
     Dates: start: 20140107, end: 20140107
  30. COUGH MIXTURE A [Concomitant]
     Dosage: 15 ML MILLILITRE(S), QID
     Route: 048
     Dates: start: 20140109, end: 20140109
  31. MOPRIDE [Concomitant]
     Indication: ABDOMINAL DISCOMFORT
     Dosage: 5 MG MILLIGRAM(S), TID
     Route: 048
     Dates: start: 20140103, end: 20140106
  32. LASIX [Concomitant]
     Active Substance: FUROSEMIDE
     Dosage: 40 MG MILLIGRAM(S), SINGLE
     Route: 048
     Dates: start: 20140107, end: 20140107
  33. SODIUM CHLORIDE. [Concomitant]
     Active Substance: SODIUM CHLORIDE
     Dosage: 500 ML MILLILITRE(S), QD
     Route: 042
     Dates: start: 20140108, end: 20140108
  34. SODIUM CHLORIDE. [Concomitant]
     Active Substance: SODIUM CHLORIDE
     Dosage: 500 ML MILLILITRE(S), QD
     Route: 042
     Dates: start: 20140117, end: 20140117
  35. SODIUM CHLORIDE. [Concomitant]
     Active Substance: SODIUM CHLORIDE
     Dosage: 250 ML MILLILITRE(S), SINGLE
     Route: 042
     Dates: start: 20140113, end: 20140113
  36. DEXTROSE. [Concomitant]
     Active Substance: DEXTROSE
     Indication: NUTRITIONAL SUPPLEMENTATION
     Dosage: 60 ML MILLILITRE(S), SINGLE
     Route: 042
     Dates: start: 20140103, end: 20140103
  37. SENNAPUR [Concomitant]
     Dosage: 12.5 MG MILLIGRAM(S), HS
     Route: 048
     Dates: start: 20131226, end: 20131231
  38. COUGH MIXTURE A [Concomitant]
     Dosage: 10 ML MILLILITRE(S), SINGLE
     Route: 048
     Dates: start: 20131226, end: 20131226
  39. COUGH MIXTURE A [Concomitant]
     Dosage: 10 ML MILLILITRE(S), QID
     Route: 048
     Dates: start: 20140104, end: 20140104
  40. COUGH MIXTURE A [Concomitant]
     Dosage: 15 ML MILLILITRE(S), TID
     Route: 048
     Dates: start: 20140115, end: 20140115
  41. KALIMATE [Concomitant]
     Active Substance: POLYSTYRENE SULFONIC ACID
     Indication: HYPOKALAEMIA
     Dosage: 15 G GRAM(S), TID
     Route: 048
     Dates: start: 20140103, end: 20140103
  42. CARVEDILOL. [Concomitant]
     Active Substance: CARVEDILOL
     Dosage: 3.125 MG MILLIGRAM(S), BID
     Route: 048
     Dates: start: 20140112, end: 20140113
  43. MAGNESIUM OXIDE. [Concomitant]
     Active Substance: MAGNESIUM OXIDE
     Indication: CONSTIPATION
     Dosage: 250 MG MILLIGRAM(S), TID
     Route: 048
     Dates: start: 20131025, end: 20131219
  44. SODIUM CHLORIDE. [Concomitant]
     Active Substance: SODIUM CHLORIDE
     Dosage: 20 ML MILLILITRE(S), SINGLE
     Route: 042
     Dates: start: 20140103, end: 20140103
  45. SODIUM CHLORIDE. [Concomitant]
     Active Substance: SODIUM CHLORIDE
     Dosage: 250 ML MILLILITRE(S), SINGLE
     Route: 042
     Dates: start: 20131219, end: 20131219
  46. SODIUM CHLORIDE. [Concomitant]
     Active Substance: SODIUM CHLORIDE
     Dosage: 250 ML MILLILITRE(S), QD
     Route: 042
     Dates: start: 20131228, end: 20140102
  47. SODIUM CHLORIDE. [Concomitant]
     Active Substance: SODIUM CHLORIDE
     Dosage: 250 ML MILLILITRE(S), PRN
     Route: 042
     Dates: start: 20140115, end: 20140115
  48. LACTULOSE. [Concomitant]
     Active Substance: LACTULOSE
     Dosage: 15 ML MILLILITRE(S), QD
     Route: 048
     Dates: start: 20140117, end: 20140117
  49. TRICHLORMETHIAZIDE [Concomitant]
     Active Substance: TRICHLORMETHIAZIDE
     Dosage: 2 MG MILLIGRAM(S), SINGLE
     Route: 048
     Dates: start: 20140107, end: 20140107
  50. CRESTOR [Concomitant]
     Active Substance: ROSUVASTATIN CALCIUM
     Indication: HYPERLIPIDAEMIA
     Dosage: 5 MG MILLIGRAM(S), QD
     Route: 048
     Dates: start: 20131025, end: 20131223
  51. CRESTOR [Concomitant]
     Active Substance: ROSUVASTATIN CALCIUM
     Dosage: 5 MG MILLIGRAM(S), QD
     Route: 048
     Dates: start: 20131225, end: 20131230
  52. ACTEIN [Concomitant]
     Indication: INCREASED UPPER AIRWAY SECRETION
     Dosage: 200 MG MILLIGRAM(S), TID
     Route: 048
     Dates: start: 20131223, end: 20140107
  53. COUGH MIXTURE A [Concomitant]
     Dosage: 15 ML MILLILITRE(S), QID
     Route: 048
     Dates: start: 20140113, end: 20140113
  54. NOVONORM [Concomitant]
     Active Substance: REPAGLINIDE
     Dosage: 1 MG MILLIGRAM(S), QD
     Route: 048
     Dates: start: 20140104, end: 20140112
  55. SANCOBA [Concomitant]
     Active Substance: CYANOCOBALAMIN
     Dosage: 1 GTT DROP(S), QID
     Route: 047
     Dates: start: 20131226, end: 20131226
  56. MUCAINE [Concomitant]
     Active Substance: ALUMINUM HYDROXIDE\MAGNESIUM HYDROXIDE\SIMETHICONE
     Indication: ABDOMINAL DISCOMFORT
     Dosage: 5 MG MILLIGRAM(S), SINGLE
     Route: 048
     Dates: start: 20140101, end: 20140101
  57. LASIX [Concomitant]
     Active Substance: FUROSEMIDE
     Dosage: 40 MG MILLIGRAM(S), BID
     Route: 048
     Dates: start: 20131226, end: 20131227
  58. LASIX [Concomitant]
     Active Substance: FUROSEMIDE
     Dosage: 40 MG MILLIGRAM(S), BID
     Route: 048
     Dates: start: 20140108, end: 20140113
  59. CARVEDILOL. [Concomitant]
     Active Substance: CARVEDILOL
     Dosage: 3.125 MG MILLIGRAM(S), BID
     Route: 048
     Dates: start: 20131228, end: 20140104
  60. SODIUM CHLORIDE. [Concomitant]
     Active Substance: SODIUM CHLORIDE
     Indication: ELECTROLYTE SUBSTITUTION THERAPY
     Dosage: 500 ML MILLILITRE(S), QD
     Route: 042
     Dates: start: 20131217, end: 20131217
  61. SODIUM CHLORIDE. [Concomitant]
     Active Substance: SODIUM CHLORIDE
     Dosage: 500 ML MILLILITRE(S), QD
     Route: 042
     Dates: start: 20140112, end: 20140112
  62. DIMETHICONE. [Concomitant]
     Active Substance: DIMETHICONE
     Indication: FLATULENCE
     Dosage: 40 MG MILLIGRAM(S), SINGLE
     Route: 048
     Dates: start: 20140101, end: 20140101
  63. LACTULOSE. [Concomitant]
     Active Substance: LACTULOSE
     Dosage: 15 ML MILLILITRE(S), QD
     Route: 048
     Dates: start: 20140113, end: 20140113
  64. PETHIDINE [Concomitant]
     Active Substance: MEPERIDINE
     Indication: PAIN
     Dosage: 50 MG MILLIGRAM(S), SINGLE
     Route: 030
     Dates: start: 20140113, end: 20140113
  65. APRESOLINE HYDROCHLORIDE [Concomitant]
     Active Substance: HYDRALAZINE HYDROCHLORIDE
     Dosage: 25 MG MILLIGRAM(S), TID
     Route: 048
     Dates: start: 20131219, end: 20131219
  66. CRESTOR [Concomitant]
     Active Substance: ROSUVASTATIN CALCIUM
     Dosage: 5 MG MILLIGRAM(S), QD
     Route: 048
     Dates: start: 20140108, end: 20140113
  67. ALDACTONE [Concomitant]
     Active Substance: SPIRONOLACTONE
     Dosage: 25 MG MILLIGRAM(S), QD
     Route: 048
     Dates: start: 20140121
  68. SENNAPUR [Concomitant]
     Indication: CONSTIPATION
     Dosage: 12.5 MG MILLIGRAM(S), HS
     Route: 048
     Dates: start: 20131215, end: 20131215
  69. SENNAPUR [Concomitant]
     Dosage: 12.5 MG MILLIGRAM(S), HS
     Route: 048
     Dates: start: 20140103, end: 20140104
  70. COUGH MIXTURE A [Concomitant]
     Dosage: 10 ML MILLILITRE(S), TID
     Route: 048
     Dates: start: 20131230, end: 20131231
  71. COUGH MIXTURE A [Concomitant]
     Dosage: 15 ML MILLILITRE(S), QID
     Route: 048
     Dates: start: 20140111, end: 20140111
  72. SPERSIN [Concomitant]
     Indication: ANTI-INFECTIVE THERAPY
     Dosage: 100 MG MILLIGRAM(S), SINGLE
     Route: 061
     Dates: start: 20131223, end: 20131223
  73. GITOSE [Concomitant]
     Dosage: 200 ML MILLILITRE(S), QD
     Route: 042
     Dates: start: 20131215, end: 20131215
  74. GITOSE [Concomitant]
     Dosage: 250 ML MILLILITRE(S), PRN
     Route: 042
     Dates: start: 20140104, end: 20140104
  75. BOKEY [Concomitant]
     Dosage: 100 MG MILLIGRAM(S), QOD
     Route: 048
     Dates: start: 20131221, end: 20131221
  76. CARVEDILOL. [Concomitant]
     Active Substance: CARVEDILOL
     Indication: HYPERTENSION
     Dosage: 6.25 MG MILLIGRAM(S), BID
     Route: 048
     Dates: start: 20131114, end: 20131218
  77. DIGOXIN. [Concomitant]
     Active Substance: DIGOXIN
     Indication: CARDIAC FAILURE
     Dosage: 0.125 MG MILLIGRAM(S), QOD
     Route: 048
     Dates: start: 20131025, end: 20131219
  78. HEPARINOID [Concomitant]
     Active Substance: CHONDROITIN SULFATE (BOVINE)
     Indication: PHLEBITIS
     Dosage: 0.1 G GRAM(S), SINGLE
     Route: 061
     Dates: start: 20131216, end: 20131216
  79. SODIUM CHLORIDE. [Concomitant]
     Active Substance: SODIUM CHLORIDE
     Dosage: 250 ML MILLILITRE(S), SINGLE
     Route: 042
     Dates: start: 20131227, end: 20131227
  80. DEXTROSE. [Concomitant]
     Active Substance: DEXTROSE
     Dosage: 40 ML MILLILITRE(S), SINGLE
     Route: 042
     Dates: start: 20140104, end: 20140104
  81. SORBITRATE [Concomitant]
     Active Substance: ISOSORBIDE DINITRATE
     Dosage: 5 MG MILLIGRAM(S), TID
     Route: 048
     Dates: start: 20131220
  82. ACTEIN [Concomitant]
     Dosage: 200 MG MILLIGRAM(S), TID
     Route: 048
     Dates: start: 20140115, end: 20140115
  83. ALDACTONE [Concomitant]
     Active Substance: SPIRONOLACTONE
     Dosage: 50 MG MILLIGRAM(S), BID
     Route: 048
     Dates: start: 20131217, end: 20131219
  84. ALDACTONE [Concomitant]
     Active Substance: SPIRONOLACTONE
     Dosage: 25 MG MILLIGRAM(S), SINGLE
     Route: 048
     Dates: start: 20140118, end: 20140120
  85. SENNAPUR [Concomitant]
     Dosage: 12.5 MG MILLIGRAM(S), HS
     Route: 048
     Dates: start: 20131219, end: 20131219
  86. SENNAPUR [Concomitant]
     Dosage: 12.5 MG MILLIGRAM(S), HS
     Route: 048
     Dates: start: 20140118
  87. NOVONORM [Concomitant]
     Active Substance: REPAGLINIDE
     Indication: TYPE 2 DIABETES MELLITUS
     Dosage: 1 MG MILLIGRAM(S), TID
     Route: 048
     Dates: start: 20131121, end: 20131224
  88. SANCOBA [Concomitant]
     Active Substance: CYANOCOBALAMIN
     Indication: ASTHENOPIA
     Dosage: 1 GTT DROP(S), QID
     Route: 047
     Dates: start: 20131220, end: 20131221
  89. SANCOBA [Concomitant]
     Active Substance: CYANOCOBALAMIN
     Dosage: 1 GTT DROP(S), QID
     Route: 047
     Dates: start: 20131231, end: 20131231
  90. KALIMATE [Concomitant]
     Active Substance: POLYSTYRENE SULFONIC ACID
     Dosage: 30 G GRAM(S), QID
     Route: 048
     Dates: start: 20140104, end: 20140104
  91. LASIX [Concomitant]
     Active Substance: FUROSEMIDE
     Dosage: 40 MG MILLIGRAM(S), BID
     Route: 048
     Dates: start: 20131229, end: 20140104
  92. DIMETHICONE. [Concomitant]
     Active Substance: DIMETHICONE
     Dosage: 40 MG MILLIGRAM(S), TID
     Route: 048
     Dates: start: 20140103, end: 20140127
  93. ALDACTONE [Concomitant]
     Active Substance: SPIRONOLACTONE
     Indication: DIURETIC THERAPY
     Dosage: 25 MG MILLIGRAM(S), BID
     Route: 048
     Dates: start: 20131214, end: 20131216
  94. ALDACTONE [Concomitant]
     Active Substance: SPIRONOLACTONE
     Dosage: 25 MG MILLIGRAM(S), BID
     Route: 048
     Dates: start: 20131220, end: 20131226
  95. SENNAPUR [Concomitant]
     Dosage: 25 MG MILLIGRAM(S), HS
     Route: 048
     Dates: start: 20140107, end: 20140115
  96. JANUVIA [Concomitant]
     Active Substance: SITAGLIPTIN PHOSPHATE
     Dosage: 50 MG MILLIGRAM(S), QD
     Route: 048
     Dates: start: 20131220, end: 20131222
  97. SPERSIN [Concomitant]
     Dosage: 100 MG MILLIGRAM(S), PRN
     Route: 061
     Dates: start: 20140101, end: 20140101
  98. GITOSE [Concomitant]
     Dosage: 200 ML MILLILITRE(S), SINGLE
     Route: 042
     Dates: start: 20131214, end: 20131214
  99. LASIX [Concomitant]
     Active Substance: FUROSEMIDE
     Indication: DIURETIC THERAPY
     Dosage: 40 MG MILLIGRAM(S), QD
     Route: 048
     Dates: start: 20131025, end: 20131219
  100. CARVEDILOL. [Concomitant]
     Active Substance: CARVEDILOL
     Dosage: 3.125 MG MILLIGRAM(S), BID
     Route: 048
     Dates: start: 20131219, end: 20131219
  101. MIDAZOLAM [Concomitant]
     Active Substance: MIDAZOLAM\MIDAZOLAM HYDROCHLORIDE
     Indication: ANXIETY
     Dosage: 3.75 MG MILLIGRAM(S), SINGLE
     Route: 048
     Dates: start: 20131214, end: 20131214
  102. LACTULOSE. [Concomitant]
     Active Substance: LACTULOSE
     Indication: CONSTIPATION
     Dosage: 15 ML MILLILITRE(S), SINGLE
     Route: 048
     Dates: start: 20140109, end: 20140109
  103. TRICHLORMETHIAZIDE [Concomitant]
     Active Substance: TRICHLORMETHIAZIDE
     Indication: DIURETIC THERAPY
     Dosage: 2 MG MILLIGRAM(S), BID
     Route: 048
     Dates: start: 20140104, end: 20140104
  104. TRICHLORMETHIAZIDE [Concomitant]
     Active Substance: TRICHLORMETHIAZIDE
     Dosage: 2 MG MILLIGRAM(S), BID
     Route: 048
     Dates: start: 20140108, end: 20140111

REACTIONS (1)
  - Cardiac failure congestive [Recovered/Resolved]

NARRATIVE: CASE EVENT DATE: 20131209
